FAERS Safety Report 4535891-7 (Version None)
Quarter: 2004Q4

REPORT INFORMATION
  Report Type: 
  Country: None (occurrence: None)
  Receive Date: 20041223
  Receipt Date: 20041213
  Transmission Date: 20050328
  Serious: Yes (Other)
  Sender: FDA-Public Use
  Company Number: PHFR2004GB04587

PATIENT
  Sex: Male

DRUGS (1)
  1. TEGRETOL [Suspect]
     Dosage: 800 MG/DAY
     Route: 065
     Dates: end: 20040801

REACTIONS (3)
  - ACQUIRED NIGHT BLINDNESS [None]
  - HAEMORRHAGE SUBCUTANEOUS [None]
  - PHOTOPHOBIA [None]
